FAERS Safety Report 9468519 (Version 1)
Quarter: 2013Q3

REPORT INFORMATION
  Report Type: Spontaneous
  Country: AT (occurrence: AT)
  Receive Date: 20130821
  Receipt Date: 20130821
  Transmission Date: 20140515
  Serious: Yes (Other)
  Sender: FDA-Public Use
  Company Number: AT-ROCHE-1264398

PATIENT
  Age: 71 Year
  Sex: Female

DRUGS (22)
  1. HERCEPTIN [Suspect]
     Indication: BREAST CANCER METASTATIC
     Route: 065
     Dates: start: 201004, end: 201009
  2. HERCEPTIN [Suspect]
     Route: 065
     Dates: start: 201109, end: 201110
  3. HERCEPTIN [Suspect]
     Route: 065
     Dates: start: 20111221, end: 201202
  4. HERCEPTIN [Suspect]
     Route: 065
     Dates: start: 20120217, end: 20120420
  5. HERCEPTIN [Suspect]
     Route: 065
     Dates: start: 201302, end: 201305
  6. XELODA [Suspect]
     Indication: BREAST CANCER METASTATIC
     Route: 065
     Dates: start: 201109, end: 201110
  7. XELODA [Suspect]
     Route: 065
     Dates: start: 201110, end: 201112
  8. XELODA [Suspect]
     Route: 065
     Dates: end: 20111221
  9. TYVERB [Suspect]
     Indication: BREAST CANCER METASTATIC
     Route: 065
     Dates: start: 201009, end: 201202
  10. TYVERB [Suspect]
     Route: 065
     Dates: start: 201105, end: 201108
  11. TYVERB [Suspect]
     Route: 065
     Dates: start: 201110, end: 201112
  12. TYVERB [Suspect]
     Route: 065
     Dates: start: 20111221, end: 201202
  13. TYVERB [Suspect]
     Route: 065
     Dates: start: 201009, end: 201105
  14. AROMASIN [Concomitant]
     Route: 065
     Dates: start: 201009, end: 201105
  15. AROMASIN [Concomitant]
     Route: 065
     Dates: start: 201210, end: 201301
  16. FASLODEX [Concomitant]
     Route: 065
     Dates: start: 201105, end: 201108
  17. EPIRUBICIN [Concomitant]
     Route: 065
     Dates: start: 20120514, end: 20120827
  18. EPIRUBICIN [Concomitant]
     Route: 065
     Dates: start: 201210, end: 201301
  19. CYCLOPHOSPHAMIDE [Concomitant]
     Route: 065
     Dates: start: 200609, end: 200703
  20. CYCLOPHOSPHAMIDE [Concomitant]
     Route: 065
     Dates: start: 201210, end: 201301
  21. CYCLOPHOSPHAMIDE [Concomitant]
     Dosage: 6 CYCLES
     Route: 065
     Dates: start: 200903, end: 200907
  22. AFINITOR [Concomitant]
     Route: 065
     Dates: start: 201210, end: 201301

REACTIONS (5)
  - Pleurodesis [Unknown]
  - Breast cancer metastatic [Unknown]
  - Tumour marker increased [Unknown]
  - Pleural effusion [Unknown]
  - Liver disorder [Unknown]
